FAERS Safety Report 7889858-1 (Version None)
Quarter: 2011Q4

REPORT INFORMATION
  Report Type: 
  Country: None (occurrence: None)
  Receive Date: 20111103
  Receipt Date: 20111101
  Transmission Date: 20120403
  Serious: Yes (Death)
  Sender: FDA-Public Use
  Company Number: US-GLAXOSMITHKLINE-A0951558A

PATIENT
  Age: 70 Year
  Sex: Male

DRUGS (3)
  1. OXYGEN [Concomitant]
  2. ADVAIR DISKUS 100/50 [Suspect]
     Indication: CHRONIC OBSTRUCTIVE PULMONARY DISEASE
     Route: 055
     Dates: start: 20090101, end: 20110712
  3. UNKNOWN CANCER THERAPY DRUG [Concomitant]

REACTIONS (3)
  - METASTASES TO LUNG [None]
  - COLON CANCER [None]
  - METASTASES TO LIVER [None]
